FAERS Safety Report 15422339 (Version 1)
Quarter: 2018Q3

REPORT INFORMATION
  Report Type: Spontaneous
  Country: US (occurrence: US)
  Receive Date: 20180924
  Receipt Date: 20180924
  Transmission Date: 20181010
  Serious: No
  Sender: FDA-Public Use
  Company Number: US-BAUSCH-BL-2017-025900

PATIENT
  Age: 55 Year
  Sex: Male
  Weight: 113.5 kg

DRUGS (2)
  1. MOVIPREP [Suspect]
     Active Substance: ASCORBIC ACID\POLYETHYLENE GLYCOL 3350\POTASSIUM CHLORIDE\SODIUM ASCORBATE\SODIUM CHLORIDE\SODIUM SULFATE
     Indication: COLONOSCOPY
     Dosage: SPLIT?DOSE (2?DAY) REGIMEN PER INSTRUCTIONS?AS PER INSTRUCTIONS
     Route: 048
     Dates: start: 20170823, end: 20170824
  2. NASACORT ALLERGY RELIEF [Concomitant]
     Indication: SEASONAL ALLERGY
     Dosage: 1 SPRAY INTO EACH NOSTRIL ONCE DAILY AS NEEDED

REACTIONS (2)
  - Urticaria [Recovering/Resolving]
  - Lethargy [Recovering/Resolving]

NARRATIVE: CASE EVENT DATE: 20170824
